FAERS Safety Report 5335817-2 (Version None)
Quarter: 2007Q2

REPORT INFORMATION
  Report Type: 
  Country: None (occurrence: None)
  Receive Date: 20070322
  Receipt Date: 20061027
  Transmission Date: 20071010
  Serious: No
  Sender: FDA-Public Use
  Company Number: US-CVT-062193

PATIENT
  Age: 53 Year
  Sex: Female
  Weight: 66 kg

DRUGS (12)
  1. RANEXA [Suspect]
     Indication: ANGINA PECTORIS
     Dosage: 500 MG, QD, ORAL
     Route: 048
     Dates: start: 20060101, end: 20060101
  2. RANEXA [Suspect]
     Indication: ANGINA PECTORIS
     Dosage: 500 MG, QD, ORAL
     Route: 048
     Dates: start: 20060627, end: 20060101
  3. SECTRAL (ACEBUTOLOL HYDROCHLORIDE0 [Concomitant]
  4. LASIX [Concomitant]
  5. NORVASC (AMLODIPNE) [Concomitant]
  6. PLAVIX [Concomitant]
  7. ASPIRIN [Concomitant]
  8. LISINOPRIL [Concomitant]
  9. PRAVACHOL [Concomitant]
  10. ZANTAC [Concomitant]
  11. INSULIN (INSULIN) [Concomitant]
  12. NITROGLYCERIN [Concomitant]

REACTIONS (3)
  - MALAISE [None]
  - NAUSEA [None]
  - VOMITING [None]
